FAERS Safety Report 4627981-5 (Version None)
Quarter: 2005Q2

REPORT INFORMATION
  Report Type: 
  Country: None (occurrence: None)
  Receive Date: 20050401
  Receipt Date: 20050321
  Transmission Date: 20051028
  Serious: Yes (Disabling)
  Sender: FDA-Public Use
  Company Number: GXKR2005GB00810

PATIENT
  Age: 82 Year
  Sex: Male
  Weight: 70 kg

DRUGS (6)
  1. ATENOLOL [Suspect]
     Indication: HYPERTENSION
     Dosage: 100 MG, QD; ORAL
     Route: 048
     Dates: start: 20030311, end: 20050113
  2. OMEPRAZOLE [Concomitant]
  3. DIFLUNISAL [Concomitant]
  4. ACETYLSALICYLIC ACID SRT [Concomitant]
  5. ISOSORBIDE MONONITRATE [Concomitant]
  6. DOXAZOSIN (DOXAZOSIN) [Concomitant]

REACTIONS (2)
  - ABASIA [None]
  - INTERMITTENT CLAUDICATION [None]
